FAERS Safety Report 16249025 (Version 2)
Quarter: 2019Q2

REPORT INFORMATION
  Report Type: Report from Study
  Country: US (occurrence: US)
  Receive Date: 20190429
  Receipt Date: 20190503
  Transmission Date: 20190711
  Serious: Yes (Life-Threatening, Hospitalization, Other)
  Sender: FDA-Public Use
  Company Number: US-BRISTOL-MYERS SQUIBB COMPANY-BMS-2019-035824

PATIENT
  Age: 52 Year
  Sex: Male
  Weight: 82.6 kg

DRUGS (1)
  1. NIVOLUMAB [Suspect]
     Active Substance: NIVOLUMAB
     Indication: PERIPHERAL T-CELL LYMPHOMA UNSPECIFIED
     Dosage: 240 MILLIGRAM, Q2WK
     Route: 042
     Dates: start: 20190321

REACTIONS (9)
  - Pancreatitis [Recovered/Resolved]
  - Tachycardia [Recovered/Resolved]
  - Hypercalcaemia [Recovered/Resolved]
  - Pyrexia [Recovered/Resolved]
  - Delirium [Recovered/Resolved]
  - Acute respiratory failure [Recovered/Resolved]
  - Splenic rupture [Unknown]
  - Toxic encephalopathy [Recovered/Resolved]
  - Anaemia [Unknown]

NARRATIVE: CASE EVENT DATE: 20190327
